FAERS Safety Report 22524738 (Version 2)
Quarter: 2023Q2

REPORT INFORMATION
  Report Type: Spontaneous
  Country: US (occurrence: US)
  Receive Date: 20230606
  Receipt Date: 20230621
  Transmission Date: 20230722
  Serious: Yes (Hospitalization)
  Sender: FDA-Public Use
  Company Number: US-drreddys-LIT/USA/23/0166267

PATIENT
  Age: 77 Year
  Sex: Female

DRUGS (5)
  1. OMEPRAZOLE [Suspect]
     Active Substance: OMEPRAZOLE
     Indication: Lymphocytic oesophagitis
  2. OMEPRAZOLE [Suspect]
     Active Substance: OMEPRAZOLE
     Dosage: CONTINUED AT A LOW DOSE
  3. BUDESONIDE [Suspect]
     Active Substance: BUDESONIDE
     Indication: Lymphocytic oesophagitis
     Route: 048
  4. BUDESONIDE [Suspect]
     Active Substance: BUDESONIDE
     Dosage: REDUCED TO 1MG TWICE/DAY
     Route: 048
  5. BUDESONIDE [Suspect]
     Active Substance: BUDESONIDE
     Route: 048

REACTIONS (5)
  - Lymphocytic oesophagitis [Recovering/Resolving]
  - Condition aggravated [Recovering/Resolving]
  - Drug ineffective [Unknown]
  - Arthralgia [Recovering/Resolving]
  - Dizziness [Recovering/Resolving]
